FAERS Safety Report 7896811-0 (Version None)
Quarter: 2011Q4

REPORT INFORMATION
  Report Type: 
  Country: None (occurrence: None)
  Receive Date: 20111104
  Receipt Date: 20111104
  Transmission Date: 20120403
  Serious: No
  Sender: FDA-Public Use
  Company Number: None

PATIENT
  Sex: Female
  Weight: 63.5036 kg

DRUGS (2)
  1. BONIVA [Suspect]
     Indication: OSTEOPOROSIS
     Dosage: 150MG 1 A MONTH ORALLY
     Route: 048
     Dates: start: 20110522
  2. BONIVA [Suspect]
     Indication: OSTEOPOROSIS
     Dosage: 150MG 1 A MONTH ORALLY
     Route: 048
     Dates: start: 20110822

REACTIONS (7)
  - INSOMNIA [None]
  - FATIGUE [None]
  - FEELING ABNORMAL [None]
  - DIZZINESS [None]
  - ALOPECIA [None]
  - HYPOAESTHESIA [None]
  - BACK PAIN [None]
